FAERS Safety Report 5806178-7 (Version None)
Quarter: 2008Q3

REPORT INFORMATION
  Report Type: 
  Country: None (occurrence: None)
  Receive Date: 20080709
  Receipt Date: 20080709
  Transmission Date: 20090109
  Serious: Yes (Other)
  Sender: FDA-Public Use
  Company Number: None

PATIENT
  Sex: Female
  Weight: 62.5964 kg

DRUGS (4)
  1. ALENDRONATE SODIUM [Suspect]
     Indication: OSTEOPOROSIS
     Dosage: 1 TAB DAILY ORALLY
     Route: 048
     Dates: start: 20080629, end: 20080701
  2. LIDODERM [Concomitant]
  3. FUROSEMIDE [Concomitant]
  4. PROPOXYPHENE NAPSYLATE W/ ACETAMINOPHEN [Concomitant]

REACTIONS (1)
  - VISUAL IMPAIRMENT [None]
